FAERS Safety Report 6370033-7 (Version None)
Quarter: 2009Q3

REPORT INFORMATION
  Report Type: 
  Country: None (occurrence: None)
  Receive Date: 20090923
  Receipt Date: 20070831
  Transmission Date: 20100115
  Serious: Yes (Other)
  Sender: FDA-Public Use
  Company Number: US-ASTRAZENECA-2006UW01475

PATIENT
  Age: 460 Month
  Sex: Male
  Weight: 129.7 kg

DRUGS (16)
  1. SEROQUEL [Suspect]
     Indication: DEPRESSION
     Dosage: 50-300 MG (FLUCTUATING) EVERY NIGHT
     Route: 048
     Dates: start: 20010411
  2. SEROQUEL [Suspect]
     Indication: ANXIETY
     Dosage: 50-300 MG (FLUCTUATING) EVERY NIGHT
     Route: 048
     Dates: start: 20010411
  3. SEROQUEL [Suspect]
     Indication: PANIC DISORDER
     Dosage: 50-300 MG (FLUCTUATING) EVERY NIGHT
     Route: 048
     Dates: start: 20010411
  4. SEROQUEL [Suspect]
     Dosage: 75 MG, 300 MG
     Route: 048
     Dates: start: 20010401
  5. SEROQUEL [Suspect]
     Dosage: 75 MG, 300 MG
     Route: 048
     Dates: start: 20010401
  6. SEROQUEL [Suspect]
     Dosage: 75 MG, 300 MG
     Route: 048
     Dates: start: 20010401
  7. RISPERDAL [Suspect]
     Dosage: 1 MG TO 6 MG
     Dates: start: 20001101, end: 20010401
  8. PAXIL [Concomitant]
     Dates: start: 20000101
  9. ZOLOFT [Concomitant]
     Dates: start: 20000101
  10. NEURONTIN [Concomitant]
     Dates: start: 20000101
  11. AMBIEN [Concomitant]
     Dates: start: 20000101
  12. TOFRANIL [Concomitant]
     Dosage: 75-300 MG (FLUCTUATING)
     Route: 048
     Dates: start: 19860121
  13. BUSPAR [Concomitant]
     Dosage: 30-60 MG, DAILY
     Route: 048
     Dates: start: 20001103
  14. TRANXENE [Concomitant]
     Dosage: 3.75-7.5 MG
     Dates: start: 19860121
  15. GLUCOPHAGE XR [Concomitant]
     Dosage: 500-2000 MG
     Dates: start: 20020923
  16. ZOCOR [Concomitant]
     Dates: start: 20030415

REACTIONS (3)
  - DIABETES MELLITUS [None]
  - DIABETES MELLITUS INADEQUATE CONTROL [None]
  - DIABETIC RETINOPATHY [None]
